FAERS Safety Report 5749576-2 (Version None)
Quarter: 2008Q2

REPORT INFORMATION
  Report Type: 
  Country: None (occurrence: None)
  Receive Date: 20080520
  Receipt Date: 20080520
  Transmission Date: 20081010
  Serious: Yes (Hospitalization, Other)
  Sender: FDA-Public Use
  Company Number: None

PATIENT
  Age: 74 Year
  Sex: Male
  Weight: 75.7507 kg

DRUGS (7)
  1. BORTEZOMIB [Suspect]
     Indication: MANTLE CELL LYMPHOMA
     Dosage: 2.4MG D1+4 IV
     Route: 042
     Dates: start: 20080505
  2. BORTEZOMIB [Suspect]
     Indication: MANTLE CELL LYMPHOMA
     Dosage: 2.4MG D1+4 IV
     Route: 042
     Dates: start: 20080508
  3. CYCLOPHOSPHAMIDE [Suspect]
     Indication: MANTLE CELL LYMPHOMA
     Dosage: 555 MG D1,2,3 IV
     Route: 042
     Dates: start: 20080506, end: 20080508
  4. RITUXAN 695MG IV DAY 1 [Suspect]
     Indication: MANTLE CELL LYMPHOMA
     Dosage: 695MG IV DAY 1
     Route: 042
     Dates: start: 20080505
  5. DOXORUBICIN HCL [Suspect]
     Dosage: 46MG D1-2 CIV
     Route: 042
     Dates: start: 20070506, end: 20080507
  6. DEXAMETHASONE [Suspect]
     Dosage: 40MG PO 1-4
     Route: 048
     Dates: start: 20080416, end: 20080419
  7. VINCRISTINE [Suspect]
     Dosage: 1MG D3 IV
     Route: 042
     Dates: start: 20080508

REACTIONS (8)
  - CARDIAC FAILURE [None]
  - DYSPNOEA AT REST [None]
  - DYSPNOEA EXERTIONAL [None]
  - EJECTION FRACTION DECREASED [None]
  - PLEURAL EFFUSION [None]
  - PNEUMONIA [None]
  - PULMONARY OEDEMA [None]
  - PYREXIA [None]
